FAERS Safety Report 5304515-3 (Version None)
Quarter: 2007Q2

REPORT INFORMATION
  Report Type: 
  Country: None (occurrence: None)
  Receive Date: 20070423
  Receipt Date: 20070410
  Transmission Date: 20071010
  Serious: Yes (Death, Life-Threatening, Hospitalization)
  Sender: FDA-Public Use
  Company Number: CA-AMGEN-US212111

PATIENT
  Sex: Male
  Weight: 85 kg

DRUGS (12)
  1. ENBREL [Suspect]
     Indication: RHEUMATOID ARTHRITIS
     Route: 058
     Dates: start: 20050714, end: 20070103
  2. AZATHIOPRINE [Concomitant]
     Route: 065
     Dates: start: 20020304
  3. PREDNISONE TAB [Concomitant]
     Route: 048
     Dates: start: 20020101
  4. LEFLUNOMIDE [Concomitant]
     Route: 065
     Dates: start: 20040901, end: 20060925
  5. NAPROXEN [Concomitant]
     Route: 065
     Dates: start: 20020101, end: 20070201
  6. OXYCOCET [Concomitant]
     Route: 065
  7. TYLENOL W/ CODEINE NO. 3 [Concomitant]
     Route: 065
  8. VENTOLIN [Concomitant]
     Route: 065
  9. ALTACE [Concomitant]
     Route: 065
  10. FOLIC ACID [Concomitant]
     Route: 065
  11. PERCOCET [Concomitant]
     Route: 065
  12. SYMBICORT [Concomitant]

REACTIONS (2)
  - INTERSTITIAL LUNG DISEASE [None]
  - PULMONARY FIBROSIS [None]
